FAERS Safety Report 12970800 (Version 1)
Quarter: 2016Q4

REPORT INFORMATION
  Report Type: Report from Study
  Country: None (occurrence: US)
  Receive Date: 20161123
  Receipt Date: 20161123
  Transmission Date: 20170207
  Serious: Yes (Hospitalization)
  Sender: FDA-Public Use
  Company Number: US-ABBVIE-16P-163-1791567-00

PATIENT
  Sex: Female
  Weight: 8.3 kg

DRUGS (1)
  1. SYNAGIS [Suspect]
     Active Substance: PALIVIZUMAB
     Indication: RESPIRATORY SYNCYTIAL VIRUS INFECTION
     Route: 030
     Dates: end: 20160226

REACTIONS (4)
  - Dehydration [Unknown]
  - Constipation [Unknown]
  - Off label use [Unknown]
  - Product use issue [Unknown]
